FAERS Safety Report 8602446-4 (Version None)
Quarter: 2012Q3

REPORT INFORMATION
  Report Type: 
  Country: None (occurrence: None)
  Receive Date: 20120817
  Receipt Date: 20120810
  Transmission Date: 20120928
  Serious: Yes (Hospitalization, Other)
  Sender: FDA-Public Use
  Company Number: US-ASTRAZENECA-2012SE56604

PATIENT
  Age: 62 Year
  Sex: Male

DRUGS (4)
  1. FENTANYL [Concomitant]
  2. MIDAZOLAM [Concomitant]
  3. PROPOFOL [Suspect]
     Route: 042
  4. ROCURONIUM BROMIDE [Concomitant]
     Route: 042

REACTIONS (2)
  - INJECTION SITE NECROSIS [None]
  - EXTRAVASATION [None]
